FAERS Safety Report 7823679-0 (Version None)
Quarter: 2011Q4

REPORT INFORMATION
  Report Type: 
  Country: None (occurrence: None)
  Receive Date: 20111019
  Receipt Date: 20111003
  Transmission Date: 20120403
  Serious: No
  Sender: FDA-Public Use
  Company Number: US-B.I. PHARMACEUTICALS,INC./RIDGEFIELD-2011-BP-23411BP

PATIENT
  Age: 67 Week
  Sex: Female

DRUGS (3)
  1. SYNTHROID [Concomitant]
     Indication: HYPOTHYROIDISM
     Route: 048
  2. ZEBETA [Concomitant]
     Indication: HYPERTENSION
     Route: 048
  3. ZANTAC 150 [Suspect]
     Indication: GASTROOESOPHAGEAL REFLUX DISEASE
     Dosage: 150 MG
     Route: 048
     Dates: start: 20081001

REACTIONS (3)
  - INTENTIONAL DRUG MISUSE [None]
  - COLITIS [None]
  - DIVERTICULITIS [None]
